FAERS Safety Report 7388574-2 (Version None)
Quarter: 2011Q2

REPORT INFORMATION
  Report Type: 
  Country: None (occurrence: None)
  Receive Date: 20110401
  Receipt Date: 20110318
  Transmission Date: 20111010
  Serious: No
  Sender: FDA-Public Use
  Company Number: US-JNJFOC-20110308479

PATIENT
  Sex: Female
  Weight: 52.16 kg

DRUGS (5)
  1. DURAGESIC-50 [Suspect]
     Route: 062
  2. LEXAPRO [Concomitant]
     Route: 048
  3. DURAGESIC-50 [Suspect]
     Indication: PAIN
     Route: 062
  4. OXYCODONE [Concomitant]
     Indication: PAIN
     Route: 065
  5. FENTANYL-100 [Suspect]
     Indication: PAIN
     Route: 062

REACTIONS (2)
  - WRONG TECHNIQUE IN DRUG USAGE PROCESS [None]
  - DIARRHOEA [None]
